FAERS Safety Report 6170021-X (Version None)
Quarter: 2009Q2

REPORT INFORMATION
  Report Type: 
  Country: None (occurrence: None)
  Receive Date: 20090428
  Receipt Date: 20090424
  Transmission Date: 20091009
  Serious: Yes (Other)
  Sender: FDA-Public Use
  Company Number: DE-BRISTOL-MYERS SQUIBB COMPANY-14601322

PATIENT

DRUGS (1)
  1. ORENCIA [Suspect]
     Dates: start: 20090101

REACTIONS (1)
  - VASCULITIS CEREBRAL [None]
